FAERS Safety Report 23058481 (Version 2)
Quarter: 2023Q4

REPORT INFORMATION
  Report Type: Spontaneous
  Country: CA (occurrence: CA)
  Receive Date: 20231012
  Receipt Date: 20231019
  Transmission Date: 20240110
  Serious: Yes (Other)
  Sender: FDA-Public Use
  Company Number: CA-CELLTRION INC.-2023CA018969

PATIENT

DRUGS (12)
  1. YUFLYMA [Suspect]
     Active Substance: ADALIMUMAB-AATY
     Indication: Crohn^s disease
     Dosage: 40 MG , WEEKS-WEEKLY , SUBCUTANEOUS
     Route: 058
     Dates: start: 202307
  2. YUFLYMA [Suspect]
     Active Substance: ADALIMUMAB-AATY
     Dosage: 40 MG , WEEKS-WEEKLY , SUBCUTANEOUS
     Route: 058
     Dates: start: 20230802
  3. ACETAMINOPHEN [Concomitant]
     Active Substance: ACETAMINOPHEN
  4. LIPIDIL [Concomitant]
     Active Substance: FENOFIBRATE
  5. PANTOPRAZOLE MAGNESIUM [Concomitant]
     Active Substance: PANTOPRAZOLE MAGNESIUM
  6. MICARDIS [Concomitant]
     Active Substance: TELMISARTAN
  7. MYRBETRIQ [Concomitant]
     Active Substance: MIRABEGRON
  8. VITAMIN D NOS [Concomitant]
     Active Substance: VITAMIN D NOS
  9. GLUTAMINE [LEVOGLUTAMIDE] [Concomitant]
  10. CYANOCOBALAMIN [Concomitant]
     Active Substance: CYANOCOBALAMIN
  11. MELATONIN [Concomitant]
     Active Substance: MELATONIN
     Indication: Insomnia
  12. IBUPROFEN [Concomitant]
     Active Substance: IBUPROFEN
     Indication: Pain
     Dosage: UNK, AS NEEDED

REACTIONS (2)
  - Crohn^s disease [Not Recovered/Not Resolved]
  - Product substitution issue [Unknown]
